FAERS Safety Report 6843410-5 (Version None)
Quarter: 2010Q3

REPORT INFORMATION
  Report Type: 
  Country: None (occurrence: None)
  Receive Date: 20100709
  Receipt Date: 20100702
  Transmission Date: 20110219
  Serious: Yes (Death, Hospitalization, Other)
  Sender: FDA-Public Use
  Company Number: 2010JP003737

PATIENT
  Age: 35 Year
  Sex: Male
  Weight: 60 kg

DRUGS (24)
  1. PROGRAF [Suspect]
     Indication: RENAL TRANSPLANT
     Dosage: 0.5 MG, BID, ORAL
     Route: 048
     Dates: start: 20030722, end: 20091225
  2. CELLCEPT [Suspect]
     Indication: RENAL TRANSPLANT
     Dosage: 500 MG, BID, ORAL
     Route: 048
     Dates: start: 20030722, end: 20091222
  3. PREDNISOLONE [Suspect]
     Indication: RENAL TRANSPLANT
     Dosage: 5 MG, BID, ORAL
     Route: 048
     Dates: start: 20030722, end: 20100102
  4. ADALAT CC [Concomitant]
  5. MICARDIS [Concomitant]
  6. AMOBAN (ZOPICLONE) [Concomitant]
  7. ZANTAC 150 [Concomitant]
  8. TANKARU TAIYO (CALCIUM CARBONATE) [Concomitant]
  9. ENTERONON R (BIFIDOBACTERIUM BIFIDUM, LACTOBACILLUS ACIDOPHILUS, LACTO [Concomitant]
  10. ALLOPURINOL [Concomitant]
  11. KALIMATE (CALCIUM POLYSTYRENE SULFONATE) [Concomitant]
  12. ITRACONAZOLE [Concomitant]
  13. MINOCYCLINE HCL [Concomitant]
  14. FUNGUARD (MICAFUNGIN) [Concomitant]
  15. NAUZELIN (DOMPERIDONE) [Concomitant]
  16. PURSENNID (SENNOSIDE A+B CALCIUM) [Concomitant]
  17. MUCODYNE (CARBOCISTEINE) [Concomitant]
  18. NOVOLOG [Concomitant]
  19. ALFAROL (ALFACALCIDOL) [Concomitant]
  20. AMBISOME [Concomitant]
  21. HEPARIN [Concomitant]
  22. GANCICLOVIR [Concomitant]
  23. OPEGUARD NEO (OXIGLUTATIONE) [Concomitant]
  24. VORICONAZOLE [Concomitant]

REACTIONS (17)
  - AORTIC VALVE INCOMPETENCE [None]
  - ASPERGILLUS TEST POSITIVE [None]
  - BLOOD BETA-D-GLUCAN INCREASED [None]
  - BLOOD LACTATE DEHYDROGENASE INCREASED [None]
  - CARDIAC FAILURE ACUTE [None]
  - CATHETER SITE HAEMORRHAGE [None]
  - CYTOMEGALOVIRUS INFECTION [None]
  - DEPRESSED LEVEL OF CONSCIOUSNESS [None]
  - DISSEMINATED INTRAVASCULAR COAGULATION [None]
  - EYE INFECTION [None]
  - FUNGAL SEPSIS [None]
  - HEADACHE [None]
  - LUNG INFECTION [None]
  - MENINGITIS LISTERIA [None]
  - PNEUMOCYSTIS JIROVECI PNEUMONIA [None]
  - PULMONARY ALVEOLAR HAEMORRHAGE [None]
  - SCEDOSPORIUM INFECTION [None]
